FAERS Safety Report 6766758-1 (Version None)
Quarter: 2010Q2

REPORT INFORMATION
  Report Type: 
  Country: None (occurrence: None)
  Receive Date: 20100611
  Receipt Date: 20100608
  Transmission Date: 20101027
  Serious: Yes (Hospitalization)
  Sender: FDA-Public Use
  Company Number: AU-B.I. PHARMACEUTICALS,INC./RIDGEFIELD-2010-AU-00469AU

PATIENT
  Sex: Male

DRUGS (4)
  1. MICARDIS HCT [Suspect]
     Dates: end: 20100531
  2. METHOTREXATE [Suspect]
     Indication: RHEUMATOID ARTHRITIS
     Dates: start: 20100307, end: 20100507
  3. ASPIRIN [Concomitant]
  4. LIPID LOWERING DRUG [Concomitant]

REACTIONS (3)
  - APPLICATION SITE HAEMATOMA [None]
  - TRANSIENT ISCHAEMIC ATTACK [None]
  - VASCULITIS [None]
